FAERS Safety Report 14681863 (Version 2)
Quarter: 2018Q4

REPORT INFORMATION
  Report Type: Spontaneous
  Country: US (occurrence: US)
  Receive Date: 20180326
  Receipt Date: 20181119
  Transmission Date: 20190204
  Serious: Yes (Hospitalization, Other)
  Sender: FDA-Public Use
  Company Number: US-PFIZER INC-2017519071

PATIENT
  Age: 72 Year
  Sex: Female
  Weight: 51 kg

DRUGS (1)
  1. XELJANZ XR [Suspect]
     Active Substance: TOFACITINIB CITRATE
     Indication: RHEUMATOID ARTHRITIS
     Dosage: 11 MG, DAILY
     Route: 048
     Dates: end: 20181016

REACTIONS (10)
  - Fall [Unknown]
  - Contusion [Unknown]
  - Dyspnoea [Unknown]
  - Urinary tract infection [Unknown]
  - Asthenia [Unknown]
  - Spinal fracture [Unknown]
  - Acute myocardial infarction [Unknown]
  - Cerebrovascular accident [Unknown]
  - Pneumonia [Recovering/Resolving]
  - Pelvic fracture [Unknown]

NARRATIVE: CASE EVENT DATE: 20181002
